FAERS Safety Report 11159292 (Version 1)
Quarter: 2015Q2

REPORT INFORMATION
  Report Type: Report from Study
  Country: FR (occurrence: FR)
  Receive Date: 20150603
  Receipt Date: 20150603
  Transmission Date: 20150821
  Serious: Yes (Hospitalization)
  Sender: FDA-Public Use
  Company Number: FR-GLAXOSMITHKLINE-FR2015GSK075525

PATIENT
  Age: 48 Year
  Sex: Male

DRUGS (8)
  1. TEMERIT [Concomitant]
     Active Substance: NEBIVOLOL
  2. ALDACTONE [Concomitant]
     Active Substance: SPIRONOLACTONE
  3. LASILIX [Concomitant]
     Active Substance: FUROSEMIDE
  4. TRIATEC [Concomitant]
     Active Substance: RAMIPRIL
  5. TAHOR [Concomitant]
     Active Substance: ATORVASTATIN CALCIUM
  6. PLAVIX [Concomitant]
     Active Substance: CLOPIDOGREL BISULFATE
  7. OMEGA-3-ACID ETHYL ESTERS. [Suspect]
     Active Substance: OMEGA-3-ACID ETHYL ESTERS
     Indication: ISCHAEMIC HEART DISEASE PROPHYLAXIS
     Dosage: UNK
     Dates: start: 20090313, end: 20140407
  8. KARDEGIC [Concomitant]
     Active Substance: ASPIRIN LYSINE

REACTIONS (1)
  - Neoplasm [Unknown]

NARRATIVE: CASE EVENT DATE: 20090815
